FAERS Safety Report 4563680-6 (Version None)
Quarter: 2005Q1

REPORT INFORMATION
  Report Type: 
  Country: None (occurrence: None)
  Receive Date: 20050124
  Receipt Date: 20050117
  Transmission Date: 20050727
  Serious: Yes (Hospitalization)
  Sender: FDA-Public Use
  Company Number: 2005AL000210

PATIENT
  Age: 35 Year
  Sex: Male

DRUGS (6)
  1. SERAX [Suspect]
     Dosage: 50 MG; TID; PO
     Route: 048
     Dates: start: 20030923, end: 20040403
  2. PHENOBARBITAL [Suspect]
     Dosage: PO
     Route: 048
     Dates: start: 20030923, end: 20040403
  3. SUSTIVA [Suspect]
     Dosage: 600 MG; QD; PO
     Route: 048
     Dates: start: 20040106, end: 20040402
  4. OXCARBAZEPINE [Suspect]
     Dosage: 1200 MG; QD; PO
     Route: 048
     Dates: start: 20040312, end: 20040319
  5. VIDEX [Suspect]
     Dosage: 400 MG; QD; PO
     Route: 048
     Dates: start: 20040106, end: 20040403
  6. ZERIT [Suspect]
     Dosage: 60 MG; QD; PO
     Route: 048
     Dates: start: 20040106, end: 20040403

REACTIONS (6)
  - HEPATITIS C [None]
  - LYMPHADENOPATHY [None]
  - PAIN [None]
  - PYREXIA [None]
  - RASH MACULO-PAPULAR [None]
  - RASH PRURITIC [None]
